FAERS Safety Report 6098871-9 (Version None)
Quarter: 2009Q1

REPORT INFORMATION
  Report Type: 
  Country: None (occurrence: None)
  Receive Date: 20090302
  Receipt Date: 20090220
  Transmission Date: 20090719
  Serious: Yes (Death)
  Sender: FDA-Public Use
  Company Number: B0560548A

PATIENT
  Age: 64 Year
  Sex: Male
  Weight: 80 kg

DRUGS (6)
  1. AVANDAMET [Suspect]
     Route: 065
     Dates: start: 20060718
  2. GLICLAZIDE [Concomitant]
     Route: 065
     Dates: start: 20070713
  3. CORACTEN [Concomitant]
     Route: 065
     Dates: start: 20010510
  4. ROSUVASTATIN CALCIUM [Concomitant]
     Indication: PROPHYLAXIS
     Route: 065
     Dates: start: 20030626
  5. RANITIDINE [Concomitant]
     Route: 065
     Dates: start: 20061221
  6. COSOPT [Concomitant]
     Indication: GLAUCOMA
     Dates: start: 20011219

REACTIONS (3)
  - ARTERIOSCLEROSIS CORONARY ARTERY [None]
  - LEFT VENTRICULAR FAILURE [None]
  - MYOCARDIAL INFARCTION [None]
